FAERS Safety Report 5335426-5 (Version None)
Quarter: 2007Q2

REPORT INFORMATION
  Report Type: 
  Country: None (occurrence: None)
  Receive Date: 20070525
  Receipt Date: 20070515
  Transmission Date: 20071010
  Serious: Yes (Other)
  Sender: FDA-Public Use
  Company Number: US-PFIZER INC-2007040270

PATIENT
  Sex: Female
  Weight: 90.7 kg

DRUGS (6)
  1. CHANTIX [Suspect]
     Indication: SMOKING CESSATION THERAPY
     Dates: start: 20070428, end: 20070512
  2. DEPO-PROVERA [Concomitant]
     Indication: MENSTRUAL DISCOMFORT
     Dates: start: 20020601, end: 20020101
  3. ZESTRIL [Concomitant]
  4. ASTELIN [Concomitant]
  5. SINGULAIR [Concomitant]
  6. ACIDOPHILUS [Concomitant]

REACTIONS (2)
  - DIARRHOEA [None]
  - GASTRIC DISORDER [None]
